FAERS Safety Report 21680120 (Version 2)
Quarter: 2022Q4

REPORT INFORMATION
  Report Type: Spontaneous
  Country: AT (occurrence: AT)
  Receive Date: 20221205
  Receipt Date: 20221221
  Transmission Date: 20230113
  Serious: Yes (Other)
  Sender: FDA-Public Use
  Company Number: AT-BRISTOL-MYERS SQUIBB COMPANY-2022-146248

PATIENT
  Age: 51 Year
  Sex: Female
  Weight: 92 kg

DRUGS (3)
  1. OPDIVO [Suspect]
     Active Substance: NIVOLUMAB
     Indication: Renal cell carcinoma
     Dates: start: 202110
  2. OPDIVO [Suspect]
     Active Substance: NIVOLUMAB
  3. ELIQUIS [Concomitant]
     Active Substance: APIXABAN

REACTIONS (8)
  - Immune-mediated hepatitis [Unknown]
  - Immune-mediated thyroiditis [Unknown]
  - Immune-mediated nephritis [Unknown]
  - Immune-mediated lung disease [Unknown]
  - Immune-mediated enterocolitis [Unknown]
  - Adrenal insufficiency [Unknown]
  - Hypophysitis [Unknown]
  - Skin reaction [Unknown]
